FAERS Safety Report 7394480-X (Version None)
Quarter: 2011Q2

REPORT INFORMATION
  Report Type: 
  Country: None (occurrence: None)
  Receive Date: 20110405
  Receipt Date: 20110323
  Transmission Date: 20111010
  Serious: Yes (Other)
  Sender: FDA-Public Use
  Company Number: PHHY2011GR24069

PATIENT
  Sex: Female

DRUGS (1)
  1. DISPERSADRON C [Suspect]

REACTIONS (1)
  - EYELID PTOSIS [None]
